FAERS Safety Report 18635920 (Version 1)
Quarter: 2020Q4

REPORT INFORMATION
  Report Type: Spontaneous
  Country: FR (occurrence: FR)
  Receive Date: 20201218
  Receipt Date: 20201218
  Transmission Date: 20210114
  Serious: Yes (Other)
  Sender: FDA-Public Use
  Company Number: FR-009507513-2012FRA007678

PATIENT
  Age: 56 Year
  Sex: Female

DRUGS (2)
  1. INTERFERON ALFA-2B [Suspect]
     Active Substance: INTERFERON ALFA-2B
     Dosage: UNK
     Dates: start: 199412, end: 199512
  2. HARVONI [Concomitant]
     Active Substance: LEDIPASVIR\SOFOSBUVIR
     Dosage: UNK
     Dates: start: 20180425, end: 20180801

REACTIONS (1)
  - Keratoacanthoma [Recovered/Resolved]
